FAERS Safety Report 10648423 (Version 5)
Quarter: 2015Q1

REPORT INFORMATION
  Report Type: Spontaneous
  Country: CH (occurrence: CH)
  Receive Date: 20141212
  Receipt Date: 20150123
  Transmission Date: 20150720
  Serious: Yes (Death, Hospitalization)
  Sender: FDA-Public Use
  Company Number: CH-JNJFOC-20141205202

PATIENT
  Age: 79 Year
  Sex: Female
  Weight: 80 kg

DRUGS (2)
  1. REMICADE [Suspect]
     Active Substance: INFLIXIMAB
     Indication: RHEUMATOID ARTHRITIS
     Dosage: FOUR INFUSIONS IN TOTAL
     Route: 042
     Dates: start: 20140730
  2. REMICADE [Suspect]
     Active Substance: INFLIXIMAB
     Indication: RHEUMATOID ARTHRITIS
     Dosage: 4TH INFUSION
     Route: 042
     Dates: start: 20141021, end: 20141021

REACTIONS (8)
  - Renal failure [Fatal]
  - Histiocytosis haematophagic [Fatal]
  - Urosepsis [Unknown]
  - Disseminated intravascular coagulation [Unknown]
  - Herpes zoster meningoencephalitis [Recovering/Resolving]
  - Herpes zoster [Recovering/Resolving]
  - Liver disorder [Fatal]
  - Bone marrow failure [Fatal]

NARRATIVE: CASE EVENT DATE: 2014
